FAERS Safety Report 7239311-3 (Version None)
Quarter: 2011Q1

REPORT INFORMATION
  Report Type: 
  Country: None (occurrence: None)
  Receive Date: 20110121
  Receipt Date: 20110117
  Transmission Date: 20110831
  Serious: Yes (Hospitalization)
  Sender: FDA-Public Use
  Company Number: US-GILEAD-2010-0034783

PATIENT
  Sex: Male

DRUGS (5)
  1. PROAIR HFA [Concomitant]
  2. REVATIO [Concomitant]
  3. SPIRIVA [Concomitant]
  4. LETAIRIS [Suspect]
     Indication: PULMONARY ARTERIAL HYPERTENSION
     Route: 048
     Dates: start: 20100107
  5. OXYGEN [Concomitant]

REACTIONS (1)
  - PNEUMONIA [None]
